FAERS Safety Report 16669879 (Version 2)
Quarter: 2019Q3

REPORT INFORMATION
  Report Type: Spontaneous
  Country: JP (occurrence: JP)
  Receive Date: 20190805
  Receipt Date: 20190904
  Transmission Date: 20191004
  Serious: Yes (Hospitalization, Other)
  Sender: FDA-Public Use
  Company Number: JP-PFIZER INC-2019335492

PATIENT
  Age: 90 Year
  Sex: Female

DRUGS (6)
  1. TAKEPRON [Concomitant]
     Active Substance: LANSOPRAZOLE
     Dosage: 15 MG, DAILY
     Route: 048
  2. SUJANU [Suspect]
     Active Substance: IPRAGLIFLOZIN L-PROLINE\SITAGLIPTIN PHOSPHATE
     Indication: TYPE 2 DIABETES MELLITUS
     Dosage: 100 MG, DAILY
     Route: 048
     Dates: start: 20190507, end: 20190607
  3. EDIROL [Concomitant]
     Active Substance: ELDECALCITOL
     Dosage: 0.75 MG, DAILY
     Route: 048
  4. CELECOX [Suspect]
     Active Substance: CELECOXIB
     Indication: BACK PAIN
     Dosage: 200 MG, DAILY
     Route: 048
     Dates: start: 20190329
  5. AMITIZA [Concomitant]
     Active Substance: LUBIPROSTONE
     Dosage: 48 UG, DAILY
     Route: 048
  6. BAYASPIRIN [Concomitant]
     Active Substance: ASPIRIN
     Dosage: 100 MG, DAILY
     Route: 048

REACTIONS (2)
  - Pyrexia [Recovered/Resolved]
  - Epilepsy [Recovered/Resolved]

NARRATIVE: CASE EVENT DATE: 20190607
